FAERS Safety Report 17299403 (Version 1)
Quarter: 2020Q1

REPORT INFORMATION
  Report Type: Spontaneous
  Country: GB (occurrence: GB)
  Receive Date: 20200122
  Receipt Date: 20200122
  Transmission Date: 20200409
  Serious: Yes (Other)
  Sender: FDA-Public Use
  Company Number: GB-PFIZER INC-2020024016

PATIENT
  Age: 37 Year
  Sex: Female
  Weight: 73.47 kg

DRUGS (1)
  1. SERTRALINE HCL [Suspect]
     Active Substance: SERTRALINE HYDROCHLORIDE
     Indication: SUICIDAL BEHAVIOUR
     Dosage: 200 MG, UNK
     Route: 048
     Dates: start: 201608, end: 20191003

REACTIONS (8)
  - Hyperhidrosis [Unknown]
  - Irritable bowel syndrome [Unknown]
  - Dyspepsia [Unknown]
  - Abdominal pain upper [Recovered/Resolved with Sequelae]
  - Dehydration [Unknown]
  - Product use in unapproved indication [Unknown]
  - Off label use [Unknown]
  - Diarrhoea [Unknown]

NARRATIVE: CASE EVENT DATE: 201608
